FAERS Safety Report 5015183-2 (Version None)
Quarter: 2006Q2

REPORT INFORMATION
  Report Type: 
  Country: None (occurrence: None)
  Receive Date: 20060425
  Receipt Date: 20060214
  Transmission Date: 20061013
  Serious: No
  Sender: FDA-Public Use
  Company Number: 222133

PATIENT
  Age: 37 Year
  Sex: Female

DRUGS (8)
  1. XOLAIR [Suspect]
     Indication: ASTHMA
     Dosage: 375 MG, Q2W, SUBCUTANEOUS
     Route: 058
     Dates: start: 20060123
  2. ADVAIR DISKUS 100/50 [Concomitant]
  3. ALBUTEROL INHALER (ALBUTEROL/ALBUTEROL SULFATE) [Concomitant]
  4. ALLEGRA [Concomitant]
  5. NASONEX [Concomitant]
  6. NEXIUM (ESOMEPRAOZLE MAGNESIUM) [Concomitant]
  7. SINGULAIR [Concomitant]
  8. ZOCOR [Concomitant]

REACTIONS (2)
  - ARTHRALGIA [None]
  - MYALGIA [None]
